FAERS Safety Report 8159001-2 (Version None)
Quarter: 2012Q1

REPORT INFORMATION
  Report Type: 
  Country: None (occurrence: None)
  Receive Date: 20120217
  Receipt Date: 20120206
  Transmission Date: 20120608
  Serious: No
  Sender: FDA-Public Use
  Company Number: 2012MA001715

PATIENT
  Age: 32 Year
  Sex: Female

DRUGS (4)
  1. LIDOCAINE HCL [Suspect]
     Indication: VENTRICULAR FIBRILLATION
     Dosage: ;IV
     Route: 042
  2. LIDOCAINE HCL [Suspect]
     Indication: VENTRICULAR EXTRASYSTOLES
     Dosage: ;IV
     Route: 042
  3. METOPROLOL TARTRATE [Concomitant]
  4. AMIODARONE HCL [Concomitant]

REACTIONS (7)
  - HYPOKALAEMIA [None]
  - VENTRICULAR FIBRILLATION [None]
  - PALPITATIONS [None]
  - SYNCOPE [None]
  - HYPOMAGNESAEMIA [None]
  - VENTRICULAR EXTRASYSTOLES [None]
  - LOSS OF CONSCIOUSNESS [None]
